FAERS Safety Report 5692460-3 (Version None)
Quarter: 2008Q2

REPORT INFORMATION
  Report Type: 
  Country: None (occurrence: None)
  Receive Date: 20080402
  Receipt Date: 20070918
  Transmission Date: 20081010
  Serious: No
  Sender: FDA-Public Use
  Company Number: US-BAYER-US-2007-035252

PATIENT
  Age: 32 Year
  Sex: Female
  Weight: 73 kg

DRUGS (6)
  1. LEUKINE [Suspect]
     Indication: CERVIX CARCINOMA
     Route: 058
     Dates: start: 20070827, end: 20070917
  2. CISPLATIN [Concomitant]
     Route: 042
     Dates: start: 20070813
  3. DECADRON /CAN/ [Concomitant]
     Route: 042
     Dates: start: 20070813
  4. COMPAZINE [Concomitant]
     Dosage: UNIT DOSE: 10 MG
     Route: 048
     Dates: start: 20070813
  5. ATIVAN [Concomitant]
     Dosage: UNIT DOSE: 1 MG
     Route: 048
     Dates: start: 20070813
  6. TOPOTECAN [Concomitant]
     Route: 042
     Dates: start: 20070813

REACTIONS (5)
  - BEDRIDDEN [None]
  - CHEST PAIN [None]
  - DYSPNOEA [None]
  - GASTROOESOPHAGEAL REFLUX DISEASE [None]
  - PAIN [None]
